FAERS Safety Report 6836698-8 (Version None)
Quarter: 2010Q3

REPORT INFORMATION
  Report Type: 
  Country: None (occurrence: None)
  Receive Date: 20100713
  Receipt Date: 20100709
  Transmission Date: 20110219
  Serious: Yes (Hospitalization)
  Sender: FDA-Public Use
  Company Number: US-GILEAD-2010-0030354

PATIENT
  Sex: Female
  Weight: 80.9 kg

DRUGS (7)
  1. LETAIRIS [Suspect]
     Indication: PULMONARY ARTERIAL HYPERTENSION
     Route: 048
     Dates: start: 20090217
  2. COUMADIN [Concomitant]
  3. LASIX [Concomitant]
  4. METOPROLOL [Concomitant]
  5. AMLODIPINE [Concomitant]
  6. LIPITOR [Concomitant]
  7. PROTONIX [Concomitant]

REACTIONS (1)
  - CHEST PAIN [None]
